FAERS Safety Report 5788811-1 (Version None)
Quarter: 2008Q2

REPORT INFORMATION
  Report Type: 
  Country: None (occurrence: None)
  Receive Date: 20080626
  Receipt Date: 20080617
  Transmission Date: 20081010
  Serious: Yes (Other)
  Sender: FDA-Public Use
  Company Number: IT-WATSON-2008-03671

PATIENT
  Age: 41 Year
  Sex: Female

DRUGS (6)
  1. LIDOCAINE HYDROCHLORIDE 2% WITH EPINEPHRINE (WATSON LABORATORIES) [Suspect]
     Indication: EPIDURAL ANAESTHESIA
     Dosage: 2% LIDOCAINE 9ML WITH EPI 1:200,000
     Route: 008
     Dates: start: 20080101, end: 20080101
  2. MORPHINE SULFATE (WATSON LABORATORIES) [Suspect]
     Indication: EPIDURAL ANAESTHESIA
     Dosage: UNK
     Route: 008
     Dates: start: 20080101, end: 20080101
  3. LEVOBUPIVACAINE [Suspect]
     Indication: EPIDURAL ANAESTHESIA
     Dosage: UNK
     Route: 008
     Dates: start: 20080101, end: 20080101
  4. BUPIVACAINE [Suspect]
     Indication: EPIDURAL ANAESTHESIA
     Dosage: 5 MG
     Route: 008
     Dates: start: 20080101, end: 20080101
  5. SUFENTANIL CITRATE [Suspect]
     Indication: EPIDURAL ANAESTHESIA
     Dosage: 5 MCG
     Route: 008
     Dates: start: 20080101, end: 20080101
  6. SODIUM BICARBONATE [Suspect]
     Indication: EPIDURAL ANAESTHESIA
     Dosage: 1 MEQ/10ML
     Route: 008
     Dates: start: 20080101, end: 20080101

REACTIONS (1)
  - HYPOTHERMIA [None]
